FAERS Safety Report 7789149-3 (Version None)
Quarter: 2011Q3

REPORT INFORMATION
  Report Type: 
  Country: None (occurrence: None)
  Receive Date: 20110930
  Receipt Date: 20110909
  Transmission Date: 20111222
  Serious: Yes (Other)
  Sender: FDA-Public Use
  Company Number: US-ROCHE-802536

PATIENT
  Sex: Female

DRUGS (1)
  1. BONIVA [Suspect]
     Indication: PRODUCT USED FOR UNKNOWN INDICATION
     Dosage: 2-3 YEARS
     Route: 065

REACTIONS (5)
  - OSTEOPENIA [None]
  - HYPERSENSITIVITY [None]
  - INFLAMMATION [None]
  - OSTEOPOROSIS [None]
  - HYPERCALCIURIA [None]
